FAERS Safety Report 12350947 (Version 1)
Quarter: 2016Q2

REPORT INFORMATION
  Report Type: Spontaneous
  Country: US (occurrence: None)
  Receive Date: 20160509
  Receipt Date: 20160509
  Transmission Date: 20160815
  Serious: Yes (Life-Threatening, Hospitalization, Disabling, Other)
  Sender: FDA-Public Use
  Company Number: None

PATIENT
  Age: 41 Year
  Sex: Male
  Weight: 136.99 kg

DRUGS (13)
  1. HYPERTENSION MEDS [Concomitant]
  2. B VITAMIN [Concomitant]
  3. THYROID PILL [Concomitant]
  4. VITAMIN D [Concomitant]
     Active Substance: CHOLECALCIFEROL
  5. SOTALOL. [Concomitant]
     Active Substance: SOTALOL
  6. HIGH BLOOD PRESSURE MEDS [Concomitant]
  7. GEODON [Suspect]
     Active Substance: ZIPRASIDONE HYDROCHLORIDE\ZIPRASIDONE MESYLATE
  8. METOPROLOL. [Concomitant]
     Active Substance: METOPROLOL
  9. ZYPREXA [Suspect]
     Active Substance: OLANZAPINE
  10. STELAZINE [Concomitant]
     Active Substance: TRIFLUOPERAZINE HYDROCHLORIDE
  11. VITAMIN C [Concomitant]
     Active Substance: ASCORBIC ACID
  12. COGENTIN [Concomitant]
     Active Substance: BENZTROPINE MESYLATE
  13. ASPRIN [Concomitant]
     Active Substance: ASPIRIN

REACTIONS (2)
  - Chest pain [None]
  - Cardiac disorder [None]

NARRATIVE: CASE EVENT DATE: 20060503
